FAERS Safety Report 5252537-3 (Version None)
Quarter: 2007Q1

REPORT INFORMATION
  Report Type: 
  Country: None (occurrence: None)
  Receive Date: 20070227
  Receipt Date: 20070227
  Transmission Date: 20070707
  Serious: Yes (Disabling, Other)
  Sender: FDA-Public Use
  Company Number: None

PATIENT
  Age: 69 Year
  Sex: Male
  Weight: 86.1834 kg

DRUGS (1)
  1. LUMIGAN [Suspect]
     Indication: GLAUCOMA
     Dosage: INTRAOCULAR
     Route: 031
     Dates: start: 20061215, end: 20070119

REACTIONS (8)
  - DIPLOPIA [None]
  - DIZZINESS [None]
  - ERYTHEMA [None]
  - EYE DISORDER [None]
  - LOSS OF VISUAL CONTRAST SENSITIVITY [None]
  - MACULAR OEDEMA [None]
  - PHARYNGEAL OEDEMA [None]
  - VISUAL ACUITY REDUCED [None]
